FAERS Safety Report 8710976 (Version 6)
Quarter: 2013Q2

REPORT INFORMATION
  Report Type: Report from Study
  Country: JP (occurrence: JP)
  Receive Date: 20120807
  Receipt Date: 20130501
  Transmission Date: 20140414
  Serious: Yes (Hospitalization, Other)
  Sender: FDA-Public Use
  Company Number: JP-GILEAD-2012-0058996

PATIENT
  Age: 32 Year
  Sex: Female

DRUGS (9)
  1. AMBRISENTAN [Suspect]
     Indication: PULMONARY ARTERIAL HYPERTENSION
     Dosage: 2.5 MG, QD
     Route: 048
     Dates: start: 20120307, end: 20120425
  2. AMBRISENTAN [Suspect]
     Dosage: 5 MG, QD
     Route: 048
     Dates: start: 20120426, end: 20120608
  3. WARFARIN [Suspect]
     Indication: PULMONARY ARTERIAL HYPERTENSION
     Route: 048
     Dates: end: 20120608
  4. REVATIO [Concomitant]
     Indication: PULMONARY ARTERIAL HYPERTENSION
     Route: 048
  5. CARELOAD [Concomitant]
     Indication: PULMONARY ARTERIAL HYPERTENSION
     Dosage: 120 MG, UNK
     Route: 048
     Dates: start: 20110420, end: 20120608
  6. PREDNISOLONE [Concomitant]
     Indication: SYSTEMIC LUPUS ERYTHEMATOSUS
     Route: 048
  7. IMURAN                             /00001501/ [Concomitant]
     Indication: SYSTEMIC LUPUS ERYTHEMATOSUS
     Dosage: 50 MG, UNK
     Route: 048
     Dates: end: 20120608
  8. NEORAL [Concomitant]
     Indication: SYSTEMIC LUPUS ERYTHEMATOSUS
     Route: 048
     Dates: end: 20120608
  9. CAPROCIN [Concomitant]
     Indication: PULMONARY ARTERIAL HYPERTENSION
     Route: 042
     Dates: start: 20120622, end: 20120911

REACTIONS (7)
  - Exposure during pregnancy [Unknown]
  - Haemorrhage [Not Recovered/Not Resolved]
  - Abortion spontaneous [Recovered/Resolved with Sequelae]
  - Uterine cervical erosion [Not Recovered/Not Resolved]
  - Anaemia [Not Recovered/Not Resolved]
  - Headache [Recovered/Resolved]
  - Retained placenta or membranes [Recovered/Resolved]
